FAERS Safety Report 9535538 (Version 1)
Quarter: 2013Q3

REPORT INFORMATION
  Report Type: Report from Study
  Country: UY (occurrence: UY)
  Receive Date: 20130919
  Receipt Date: 20130919
  Transmission Date: 20140515
  Serious: Yes (Hospitalization)
  Sender: FDA-Public Use
  Company Number: UY-ROCHE-1275085

PATIENT
  Sex: Female

DRUGS (1)
  1. XELODA [Suspect]
     Indication: COLON CANCER
     Dosage: 2000MG AM + 1500MG PM
     Route: 048
     Dates: start: 20130809

REACTIONS (4)
  - Dehydration [Recovering/Resolving]
  - Ileus paralytic [Recovering/Resolving]
  - Malnutrition [Recovering/Resolving]
  - Diarrhoea [Recovering/Resolving]
